FAERS Safety Report 11604265 (Version 1)
Quarter: 2015Q4

REPORT INFORMATION
  Report Type: Spontaneous
  Country: US (occurrence: None)
  Receive Date: 20151006
  Receipt Date: 20151006
  Transmission Date: 20160304
  Serious: Yes (Disabling, Other)
  Sender: FDA-Public Use
  Company Number: None

PATIENT
  Age: 41 Year
  Sex: Female
  Weight: 58.97 kg

DRUGS (1)
  1. PREDNISONE 20MG [Suspect]
     Active Substance: PREDNISONE
     Indication: SINUSITIS
     Dosage: 1 PILL 3 X^S DAY
     Route: 048

REACTIONS (2)
  - Diabetes mellitus [None]
  - Type 1 diabetes mellitus [None]

NARRATIVE: CASE EVENT DATE: 20141101
